FAERS Safety Report 7104659-X (Version None)
Quarter: 2010Q4

REPORT INFORMATION
  Report Type: 
  Country: None (occurrence: None)
  Receive Date: 20101116
  Receipt Date: 20101104
  Transmission Date: 20110411
  Serious: No
  Sender: FDA-Public Use
  Company Number: KR-JNJFOC-20101102126

PATIENT
  Age: 54 Year
  Sex: Male

DRUGS (2)
  1. DURAGESIC-100 [Suspect]
     Indication: PAIN MANAGEMENT
     Route: 062
  2. DURAGESIC-100 [Suspect]
     Dosage: HALF A PATCH/ MATRIX PATCH/ (12.5  MCG/HR)
     Route: 062

REACTIONS (3)
  - DIZZINESS [None]
  - DRUG DOSE OMISSION [None]
  - WRONG TECHNIQUE IN DRUG USAGE PROCESS [None]
